FAERS Safety Report 19677587 (Version 1)
Quarter: 2021Q3

REPORT INFORMATION
  Report Type: Spontaneous
  Country: CN (occurrence: CN)
  Receive Date: 20210809
  Receipt Date: 20210809
  Transmission Date: 20211014
  Serious: Yes (Other)
  Sender: FDA-Public Use
  Company Number: CN-BAYER-2021-187696

PATIENT
  Age: 56 Year
  Sex: Male
  Weight: 75 kg

DRUGS (1)
  1. AVELOX [Suspect]
     Active Substance: MOXIFLOXACIN HYDROCHLORIDE
     Indication: PNEUMONIA
     Dosage: 0.4 G, QD
     Route: 041
     Dates: start: 20210722, end: 20210723

REACTIONS (5)
  - Nausea [Recovering/Resolving]
  - Abdominal discomfort [Recovering/Resolving]
  - Chest discomfort [Recovering/Resolving]
  - Acute coronary syndrome [Recovering/Resolving]
  - Cardiac failure [Recovering/Resolving]

NARRATIVE: CASE EVENT DATE: 20210722
